FAERS Safety Report 23891261 (Version 1)
Quarter: 2024Q2

REPORT INFORMATION
  Report Type: Report from Study
  Country: US (occurrence: US)
  Receive Date: 20240523
  Receipt Date: 20240523
  Transmission Date: 20240716
  Serious: Yes (Death)
  Sender: FDA-Public Use
  Company Number: US-JNJFOC-20240547691

PATIENT
  Age: 41 Year
  Sex: Male
  Weight: 63.56 kg

DRUGS (5)
  1. SPRAVATO [Suspect]
     Active Substance: ESKETAMINE
     Indication: Depression
     Dosage: ^84 MG, 15 TOTAL DOSES^
     Dates: start: 20240111, end: 20240309
  2. EFFEXOR [Concomitant]
     Active Substance: VENLAFAXINE HYDROCHLORIDE
     Indication: Depression
     Route: 048
  3. LITHIUM [Concomitant]
     Active Substance: LITHIUM
     Indication: Drug therapy
     Route: 048
  4. REXULTI [Concomitant]
     Active Substance: BREXPIPRAZOLE
     Indication: Drug therapy
     Route: 048
  5. TRAZODONE [Concomitant]
     Active Substance: TRAZODONE HYDROCHLORIDE
     Indication: Insomnia
     Route: 048

REACTIONS (2)
  - Completed suicide [Fatal]
  - Drug ineffective [Unknown]

NARRATIVE: CASE EVENT DATE: 20240101
